FAERS Safety Report 6311885-6 (Version None)
Quarter: 2009Q3

REPORT INFORMATION
  Report Type: 
  Country: None (occurrence: None)
  Receive Date: 20090817
  Receipt Date: 20090810
  Transmission Date: 20100115
  Serious: Yes (Hospitalization)
  Sender: FDA-Public Use
  Company Number: US-BRISTOL-MYERS SQUIBB COMPANY-14735120

PATIENT
  Age: 54 Year
  Sex: Male

DRUGS (4)
  1. WARFARIN SODIUM [Suspect]
     Indication: PROTEIN S DEFICIENCY
  2. MYCOPHENOLATE MOFETIL [Suspect]
     Indication: POLYNEUROPATHY
  3. PREDNISOLONE [Suspect]
     Indication: POLYNEUROPATHY
  4. IMMUNE GLOBULIN INTRAVENOUS (HUMAN) [Suspect]

REACTIONS (3)
  - BACTERIAL INFECTION [None]
  - CALCIPHYLAXIS [None]
  - FUNGAL INFECTION [None]
